FAERS Safety Report 4957684-9 (Version None)
Quarter: 2006Q1

REPORT INFORMATION
  Report Type: 
  Country: None (occurrence: None)
  Receive Date: 20060330
  Receipt Date: 20050822
  Transmission Date: 20060701
  Serious: Yes (Other)
  Sender: FDA-Public Use
  Company Number: PHEH2005US09403

PATIENT
  Age: 57 Year
  Sex: Female

DRUGS (6)
  1. FEMARA [Concomitant]
     Dosage: 2.5 MG TAB, 1T PO QD
     Route: 048
  2. XELODA [Concomitant]
     Dosage: UNK, X 8
     Dates: start: 20030701, end: 20031201
  3. XELODA [Concomitant]
     Dosage: UNK, X 2
     Dates: start: 20040101, end: 20040201
  4. ANASTROZOLE [Concomitant]
     Dates: start: 20000101, end: 20050201
  5. ZOMETA [Suspect]
     Indication: METASTASES TO BONE
     Dosage: 4 MG, Q4 WKS
     Dates: start: 20030109, end: 20050801
  6. FASLODEX [Concomitant]
     Dosage: UNK, UNK
     Dates: start: 20050201

REACTIONS (22)
  - BONE DEBRIDEMENT [None]
  - BONE DISORDER [None]
  - DENTAL CARE [None]
  - DENTAL CLEANING [None]
  - DENTAL OPERATION [None]
  - DEPRESSION [None]
  - FACE AND MOUTH X-RAY ABNORMAL [None]
  - FACIAL PAIN [None]
  - FISTULA [None]
  - GINGIVAL SWELLING [None]
  - GINGIVITIS [None]
  - IMPAIRED HEALING [None]
  - INSOMNIA [None]
  - LOCALISED INFECTION [None]
  - OSTEOMYELITIS [None]
  - OSTEONECROSIS [None]
  - PAIN [None]
  - PAIN IN JAW [None]
  - PURULENT DISCHARGE [None]
  - SENSATION OF PRESSURE [None]
  - SWELLING FACE [None]
  - TOOTH EXTRACTION [None]
